FAERS Safety Report 20898602 (Version 2)
Quarter: 2022Q2

REPORT INFORMATION
  Report Type: Report from Study
  Country: PT (occurrence: PT)
  Receive Date: 20220601
  Receipt Date: 20220622
  Transmission Date: 20220720
  Serious: Yes (Other)
  Sender: FDA-Public Use
  Company Number: PT-ABBVIE-22K-130-4415751-00

PATIENT
  Age: 65 Year
  Sex: Male

DRUGS (5)
  1. CARBIDOPA\LEVODOPA [Suspect]
     Active Substance: CARBIDOPA\LEVODOPA
     Indication: Parkinson^s disease
     Dosage: 20 MG + 5 MG?MORNIN:7ML;MAINT:3.2ML/H;EXTRA:1ML
     Route: 050
     Dates: start: 20220511, end: 202205
  2. CARBIDOPA\LEVODOPA [Suspect]
     Active Substance: CARBIDOPA\LEVODOPA
     Dosage: 20 MG + 5 MG?MORNI:10.2ML;MAINT:4.5ML/H;EXTRA:3ML,LL0
     Route: 050
     Dates: start: 202205
  3. CLONAZEPAM [Concomitant]
     Active Substance: CLONAZEPAM
     Indication: Product used for unknown indication
  4. FOLIC ACID PLUS VITAMIN B12 [Concomitant]
     Indication: Product used for unknown indication
     Dates: start: 202205
  5. BENSERAZIDE HYDROCHLORIDE\LEVODOPA [Concomitant]
     Active Substance: BENSERAZIDE HYDROCHLORIDE\LEVODOPA
     Indication: Product used for unknown indication

REACTIONS (6)
  - Urinary tract infection [Recovered/Resolved]
  - Stoma site discharge [Recovered/Resolved]
  - Pollakiuria [Recovered/Resolved]
  - Urine analysis abnormal [Recovered/Resolved]
  - Urinary retention [Recovered/Resolved]
  - Stoma site erythema [Recovered/Resolved]

NARRATIVE: CASE EVENT DATE: 20220525
